FAERS Safety Report 20995490 (Version 2)
Quarter: 2022Q3

REPORT INFORMATION
  Report Type: Spontaneous
  Country: JP (occurrence: JP)
  Receive Date: 20220622
  Receipt Date: 20220707
  Transmission Date: 20221026
  Serious: Yes (Hospitalization, Other)
  Sender: FDA-Public Use
  Company Number: JP-NOVARTISPH-NVSJ2022JP092695

PATIENT
  Age: 88 Year
  Sex: Female

DRUGS (3)
  1. ENTRESTO [Suspect]
     Active Substance: SACUBITRIL\VALSARTAN
     Indication: Hypertension
     Dosage: 100 MG
     Route: 048
     Dates: start: 20220307
  2. ENTRESTO [Suspect]
     Active Substance: SACUBITRIL\VALSARTAN
     Dosage: 200 MG
     Route: 048
     Dates: start: 202204
  3. EXELON PATCH [Suspect]
     Active Substance: RIVASTIGMINE
     Indication: Dementia
     Dosage: 18 MG, PATCH10(CM2)
     Route: 062

REACTIONS (4)
  - Feeding disorder [Unknown]
  - Dysphagia [Unknown]
  - Pneumonia aspiration [Unknown]
  - Drug ineffective [Unknown]
